FAERS Safety Report 22257253 (Version 2)
Quarter: 2023Q2

REPORT INFORMATION
  Report Type: Spontaneous
  Country: AU (occurrence: AU)
  Receive Date: 20230427
  Receipt Date: 20230523
  Transmission Date: 20230722
  Serious: Yes (Other)
  Sender: FDA-Public Use
  Company Number: AU-BAXTER-2023BAX019516

PATIENT
  Sex: Female

DRUGS (5)
  1. DOXORUBICIN [Suspect]
     Active Substance: DOXORUBICIN
     Indication: Diffuse large B-cell lymphoma
     Dosage: 6 CYCLES, AS PART OF R-CHOP REGIMEN CHEMOTHERAPY
     Route: 065
     Dates: start: 20230228
  2. CYCLOPHOSPHAMIDE [Suspect]
     Active Substance: CYCLOPHOSPHAMIDE
     Indication: Diffuse large B-cell lymphoma
     Dosage: 6 CYCLES, AS PART OF R-CHOP REGIMEN CHEMOTHERAPY
     Route: 065
     Dates: start: 20230228
  3. VINCRISTINE [Suspect]
     Active Substance: VINCRISTINE
     Indication: Diffuse large B-cell lymphoma
     Dosage: 6 CYCLES, AS PART OF R-CHOP REGIMEN CHEMOTHERAPY
     Route: 065
     Dates: start: 20230228
  4. PREDNISONE [Suspect]
     Active Substance: PREDNISONE
     Indication: Diffuse large B-cell lymphoma
     Dosage: 6 CYCLES, AS PART OF R-CHOP REGIMEN CHEMOTHERAPY
     Route: 065
     Dates: start: 20230228
  5. RITUXIMAB [Suspect]
     Active Substance: RITUXIMAB
     Indication: Diffuse large B-cell lymphoma
     Dosage: 6 CYCLES, AS PART OF R-CHOP REGIMEN CHEMOTHERAPY
     Route: 065
     Dates: start: 20230228

REACTIONS (3)
  - Central nervous system lymphoma [Unknown]
  - Gait disturbance [Unknown]
  - Balance disorder [Unknown]
